FAERS Safety Report 17467277 (Version 3)
Quarter: 2020Q1

REPORT INFORMATION
  Report Type: Spontaneous
  Country: US (occurrence: US)
  Receive Date: 20200227
  Receipt Date: 20200318
  Transmission Date: 20200409
  Serious: No
  Sender: FDA-Public Use
  Company Number: US-PFIZER INC-2020082993

PATIENT
  Sex: Male

DRUGS (5)
  1. LIDOCAINE HCL [Suspect]
     Active Substance: LIDOCAINE HYDROCHLORIDE
     Dosage: 50 ML
  2. OMNIPAQUE [Suspect]
     Active Substance: IOHEXOL
     Dosage: 50 ML, UNK
  3. XYLOCAINE PLAIN [Suspect]
     Active Substance: LIDOCAINE HYDROCHLORIDE
     Dosage: UNK
  4. MIDAZOLAM HYDROCHLORIDE. [Suspect]
     Active Substance: MIDAZOLAM HYDROCHLORIDE
     Dosage: UNK
  5. DEXAMETHASONE SODIUM [Suspect]
     Active Substance: DEXAMETHASONE
     Dosage: UNK

REACTIONS (3)
  - Arthralgia [Unknown]
  - Feeling abnormal [Unknown]
  - Injection site pain [Unknown]
